FAERS Safety Report 23048596 (Version 1)
Quarter: 2023Q4

REPORT INFORMATION
  Report Type: Spontaneous
  Country: US (occurrence: US)
  Receive Date: 20231010
  Receipt Date: 20231010
  Transmission Date: 20240110
  Serious: No
  Sender: FDA-Public Use
  Company Number: US-AVET LIFESCIENCES LTD-2023-AVET-000290

PATIENT

DRUGS (2)
  1. CALCIUM ACETATE [Suspect]
     Active Substance: CALCIUM ACETATE
     Indication: Nephropathy
     Dosage: UNK, TID
  2. INSULIN NOS [Concomitant]
     Active Substance: INSULIN NOS
     Indication: Diabetes mellitus
     Dosage: INCREASE INSULIN

REACTIONS (1)
  - Blood glucose increased [Recovered/Resolved]
